FAERS Safety Report 5132278-3 (Version None)
Quarter: 2006Q4

REPORT INFORMATION
  Report Type: 
  Country: None (occurrence: None)
  Receive Date: 20061023
  Receipt Date: 20061011
  Transmission Date: 20070319
  Serious: Yes (Hospitalization)
  Sender: FDA-Public Use
  Company Number: FI-ROCHE-466942

PATIENT
  Age: 44 Year
  Sex: Female

DRUGS (7)
  1. ROACCUTAN [Suspect]
     Route: 048
     Dates: start: 20030615, end: 20060703
  2. ESTRADIOL INJ [Suspect]
     Indication: HORMONE REPLACEMENT THERAPY
     Route: 003
     Dates: end: 20060703
  3. PANADOL [Suspect]
     Indication: MIGRAINE
     Dosage: DRUG REPORTED AS PANADOL EXTEND.
     Route: 048
     Dates: start: 20060615, end: 20060615
  4. STAROGYN [Concomitant]
     Dosage: THE DRUG WAS ADMINISTERED IN SPRING 2006.
     Dates: start: 20060615, end: 20060615
  5. NARAMIG [Concomitant]
     Indication: MIGRAINE
     Route: 048
     Dates: start: 20060115, end: 20060215
  6. LORATADINE [Concomitant]
     Route: 048
  7. PRIMOLUT N [Concomitant]

REACTIONS (2)
  - CHRONIC HEPATITIS [None]
  - HEPATIC NECROSIS [None]
